FAERS Safety Report 10429921 (Version 1)
Quarter: 2014Q3

REPORT INFORMATION
  Report Type: Spontaneous
  Country: US (occurrence: US)
  Receive Date: 20140904
  Receipt Date: 20140904
  Transmission Date: 20150326
  Serious: Yes (Other)
  Sender: FDA-Public Use
  Company Number: US-PFIZER INC-2014242526

PATIENT
  Age: 52 Year
  Sex: Female
  Weight: 85.71 kg

DRUGS (2)
  1. LYRICA [Suspect]
     Active Substance: PREGABALIN
     Indication: FIBROMYALGIA
     Dosage: UNK
     Dates: start: 201408, end: 201408
  2. DESYREL [Suspect]
     Active Substance: TRAZODONE HYDROCHLORIDE
     Dosage: 100 MG, UNK
     Dates: start: 20140807, end: 20140813

REACTIONS (15)
  - Restless legs syndrome [Unknown]
  - Musculoskeletal stiffness [Unknown]
  - Joint swelling [Unknown]
  - Activities of daily living impaired [Unknown]
  - Peripheral swelling [Unknown]
  - Eyelid oedema [Unknown]
  - Headache [Unknown]
  - Somnolence [Unknown]
  - Eye oedema [Unknown]
  - Hangover [Unknown]
  - Cerebrovascular accident [Unknown]
  - Hypersensitivity [Unknown]
  - Malaise [Unknown]
  - Disturbance in attention [Unknown]
  - Limb discomfort [Unknown]

NARRATIVE: CASE EVENT DATE: 201408
